FAERS Safety Report 8480399-X (Version None)
Quarter: 2012Q3

REPORT INFORMATION
  Report Type: 
  Country: None (occurrence: None)
  Receive Date: 20120702
  Receipt Date: 20120626
  Transmission Date: 20120928
  Serious: Yes (Hospitalization, Other)
  Sender: FDA-Public Use
  Company Number: CA-ROCHE-1075162

PATIENT
  Sex: Female

DRUGS (2)
  1. XOLAIR [Suspect]
     Indication: ASTHMA
     Route: 058
     Dates: start: 20090513
  2. XOLAIR [Suspect]
     Route: 058
     Dates: start: 20110913

REACTIONS (11)
  - DYSPNOEA [None]
  - NASOPHARYNGITIS [None]
  - CHOKING [None]
  - NAUSEA [None]
  - DIARRHOEA [None]
  - INCREASED BRONCHIAL SECRETION [None]
  - TYPE 2 DIABETES MELLITUS [None]
  - PYREXIA [None]
  - VOMITING [None]
  - WHEEZING [None]
  - COUGH [None]
